FAERS Safety Report 5499574-1 (Version None)
Quarter: 2007Q4

REPORT INFORMATION
  Report Type: 
  Country: None (occurrence: None)
  Receive Date: 20071026
  Receipt Date: 20071017
  Transmission Date: 20080405
  Serious: Yes (Other)
  Sender: FDA-Public Use
  Company Number: US-ELI_LILLY_AND_COMPANY-US200710004991

PATIENT
  Sex: Male

DRUGS (2)
  1. HUMULIN R [Suspect]
  2. HUMULIN N [Suspect]

REACTIONS (1)
  - RENAL FAILURE CHRONIC [None]
